FAERS Safety Report 5918162-3 (Version None)
Quarter: 2008Q4

REPORT INFORMATION
  Report Type: 
  Country: None (occurrence: None)
  Receive Date: 20081014
  Receipt Date: 20081007
  Transmission Date: 20090506
  Serious: No
  Sender: FDA-Public Use
  Company Number: US-B.I. PHARMACEUTICALS,INC./RIDGEFIELD-2008-BP-13935BP

PATIENT
  Age: 71 Year
  Sex: Male

DRUGS (8)
  1. CATAPRES-TTS-1 [Suspect]
     Indication: HYPERTENSION
     Dosage: .2MG
     Route: 061
  2. LISINOPRIL [Concomitant]
     Dosage: 40MG
  3. GLIPIZIDE [Concomitant]
     Dosage: 15MG
  4. PLAVIX [Concomitant]
     Dosage: 75MG
  5. GABAPENTIN [Concomitant]
     Dosage: 900MG
  6. DILTIAZEM CD [Concomitant]
     Dosage: 240MG
  7. SIMVASTATIN [Concomitant]
     Dosage: 20MG
  8. CENTRUM SILVER [Concomitant]

REACTIONS (3)
  - APPLICATION SITE ERYTHEMA [None]
  - APPLICATION SITE PRURITUS [None]
  - APPLICATION SITE RASH [None]
